FAERS Safety Report 8330121-2 (Version None)
Quarter: 2012Q2

REPORT INFORMATION
  Report Type: 
  Country: None (occurrence: None)
  Receive Date: 20120502
  Receipt Date: 20120418
  Transmission Date: 20120825
  Serious: Yes (Other)
  Sender: FDA-Public Use
  Company Number: CN-JNJFOC-20120500244

PATIENT
  Sex: Male
  Weight: 41 kg

DRUGS (1)
  1. ITRACONAZOLE [Suspect]
     Indication: FUNGAL INFECTION
     Route: 048
     Dates: start: 20110820, end: 20110902

REACTIONS (1)
  - HYPERBILIRUBINAEMIA [None]
